FAERS Safety Report 15493921 (Version 2)
Quarter: 2018Q4

REPORT INFORMATION
  Report Type: Spontaneous
  Country: MX (occurrence: MX)
  Receive Date: 20181012
  Receipt Date: 20181023
  Transmission Date: 20190205
  Serious: Yes (Other)
  Sender: FDA-Public Use
  Company Number: MX-BAYER-2018-188517

PATIENT
  Sex: Female

DRUGS (1)
  1. MIRENA [Suspect]
     Active Substance: LEVONORGESTREL
     Dosage: 20 MCG/24HR, CONT
     Route: 015
     Dates: start: 201402, end: 20180926

REACTIONS (14)
  - Abdominal infection [None]
  - Pain [None]
  - Pregnancy with contraceptive device [None]
  - Gastrointestinal injury [None]
  - Device dislocation [None]
  - Anger [None]
  - Salpingitis [None]
  - Caesarean section [None]
  - Uterine perforation [None]
  - Fallopian tube perforation [None]
  - Abdominal abscess [None]
  - Abdominal pain [None]
  - Injury associated with device [None]
  - Drug ineffective [None]

NARRATIVE: CASE EVENT DATE: 20180925
